FAERS Safety Report 6454711-7 (Version None)
Quarter: 2009Q4

REPORT INFORMATION
  Report Type: 
  Country: None (occurrence: None)
  Receive Date: 20091118
  Receipt Date: 20091104
  Transmission Date: 20100525
  Serious: Yes (Other)
  Sender: FDA-Public Use
  Company Number: 20090516

PATIENT
  Age: 54 Year
  Sex: Female
  Weight: 54.4316 kg

DRUGS (4)
  1. VENOFER [Suspect]
     Indication: ANAEMIA
     Dosage: 300 MG IN 250 CC NS OVER 2 HRS INTRAVENOUS
     Route: 042
     Dates: start: 20091019, end: 20091019
  2. VENOFER [Suspect]
     Indication: IRON DEFICIENCY ANAEMIA
     Dosage: 300 MG IN 250 CC NS OVER 2 HRS INTRAVENOUS
     Route: 042
     Dates: start: 20091019, end: 20091019
  3. VENOFER [Suspect]
     Indication: ANAEMIA
     Dosage: 300 MG IN 250 CC NS OVER 2 HRS INTRAVENOUS
     Route: 042
     Dates: start: 20091019, end: 20091019
  4. VENOFER [Suspect]
     Indication: IRON DEFICIENCY ANAEMIA
     Dosage: 300 MG IN 250 CC NS OVER 2 HRS INTRAVENOUS
     Route: 042
     Dates: start: 20091019, end: 20091019

REACTIONS (3)
  - DIZZINESS [None]
  - LOSS OF CONSCIOUSNESS [None]
  - PRESYNCOPE [None]
